FAERS Safety Report 4928597-3 (Version None)
Quarter: 2006Q1

REPORT INFORMATION
  Report Type: 
  Country: None (occurrence: None)
  Receive Date: 20060301
  Receipt Date: 20001214
  Transmission Date: 20060701
  Serious: Yes (Death, Hospitalization)
  Sender: FDA-Public Use
  Company Number: 2000AP05749

PATIENT
  Age: 24 Year
  Sex: Male

DRUGS (2)
  1. PROPOFOL [Suspect]
     Indication: SEDATION
     Dosage: PROPOFOL - MEAN DOSE
     Route: 042
  2. NOREPINEPHRINE [Concomitant]

REACTIONS (7)
  - ARRHYTHMIA SUPRAVENTRICULAR [None]
  - CARDIAC ARREST [None]
  - HYPERKALAEMIA [None]
  - LUNG INFILTRATION [None]
  - METABOLIC ACIDOSIS [None]
  - RHABDOMYOLYSIS [None]
  - VENTRICULAR ARRHYTHMIA [None]
